FAERS Safety Report 9131721 (Version 1)
Quarter: 2013Q1

REPORT INFORMATION
  Report Type: Report from Study
  Country: US (occurrence: US)
  Receive Date: 20130301
  Receipt Date: 20130301
  Transmission Date: 20140127
  Serious: No
  Sender: FDA-Public Use
  Company Number: US-MYLANLABS-2012S1012391

PATIENT
  Age: 17 Year
  Sex: Male
  Weight: 81.65 kg

DRUGS (3)
  1. AMNESTEEM CAPSULES [Suspect]
     Indication: ACNE
     Route: 048
     Dates: end: 201206
  2. CLARAVIS [Suspect]
     Indication: ACNE
     Route: 048
     Dates: start: 201201, end: 201202
  3. ZYRTEC [Concomitant]
     Indication: MULTIPLE ALLERGIES

REACTIONS (3)
  - Mood swings [Recovered/Resolved]
  - Lip dry [Recovered/Resolved]
  - Irritability [Recovered/Resolved]
